FAERS Safety Report 4322897-6 (Version None)
Quarter: 2004Q1

REPORT INFORMATION
  Report Type: 
  Country: None (occurrence: None)
  Receive Date: 20040324
  Receipt Date: 20020516
  Transmission Date: 20041129
  Serious: Yes (Hospitalization, Other)
  Sender: FDA-Public Use
  Company Number: WAES 0205USA02074

PATIENT
  Age: 55 Year
  Sex: Male
  Weight: 102 kg

DRUGS (6)
  1. WELLBUTRIN [Concomitant]
     Dates: start: 19960601, end: 20040301
  2. ENBREL [Concomitant]
  3. GLUCOSAMINE [Concomitant]
  4. METHOTREXATE [Concomitant]
     Dates: start: 19960301, end: 20040301
  5. VIOXX [Suspect]
     Indication: ARTHRITIS
     Route: 048
     Dates: start: 20000301, end: 20001101
  6. VIOXX [Suspect]
     Indication: RHEUMATOID ARTHRITIS
     Route: 048
     Dates: start: 20000301, end: 20001101

REACTIONS (4)
  - CORONARY ARTERY DISEASE [None]
  - EMOTIONAL DISTRESS [None]
  - MYOCARDIAL INFARCTION [None]
  - OVERDOSE [None]
